FAERS Safety Report 4749943-X (Version None)
Quarter: 2005Q3

REPORT INFORMATION
  Report Type: 
  Country: None (occurrence: None)
  Receive Date: 20050822
  Receipt Date: 20050309
  Transmission Date: 20060218
  Serious: Yes (Hospitalization, Disabling, Other)
  Sender: FDA-Public Use
  Company Number: US-MERCK-0503USA01655

PATIENT
  Age: 47 Year
  Sex: Male
  Weight: 72 kg

DRUGS (5)
  1. VIOXX [Suspect]
     Indication: INFLAMMATION
     Route: 048
     Dates: start: 20000301, end: 20010401
  2. VIOXX [Suspect]
     Indication: PAIN
     Route: 048
     Dates: start: 20000301, end: 20010401
  3. XANAX [Concomitant]
     Indication: ANXIETY
     Route: 065
     Dates: start: 20000101
  4. XANAX [Concomitant]
     Indication: DEPRESSION
     Route: 065
     Dates: start: 20000101
  5. DARVOCET-N 100 [Concomitant]
     Route: 065
     Dates: start: 20010101

REACTIONS (20)
  - ANXIETY [None]
  - ATRIAL FIBRILLATION [None]
  - BASAL CELL CARCINOMA [None]
  - CARDIAC FAILURE CONGESTIVE [None]
  - CARDIOMYOPATHY [None]
  - CEREBROVASCULAR ACCIDENT [None]
  - CONGESTIVE CARDIOMYOPATHY [None]
  - DEPRESSION [None]
  - DISABILITY [None]
  - HEPATIC CONGESTION [None]
  - INTERVERTEBRAL DISC DISORDER [None]
  - MALIGNANT MELANOMA [None]
  - MYOCARDIAL INFARCTION [None]
  - NEPHROLITHIASIS [None]
  - PNEUMONITIS [None]
  - PULMONARY OEDEMA [None]
  - RASH [None]
  - RENAL DISORDER [None]
  - RESPIRATORY FAILURE [None]
  - VENTRICULAR TACHYCARDIA [None]
